FAERS Safety Report 8413411-4 (Version None)
Quarter: 2012Q2

REPORT INFORMATION
  Report Type: 
  Country: None (occurrence: None)
  Receive Date: 20120605
  Receipt Date: 20120530
  Transmission Date: 20120825
  Serious: No
  Sender: FDA-Public Use
  Company Number: US-PFIZER INC-2012078292

PATIENT
  Sex: Female
  Weight: 45 kg

DRUGS (1)
  1. RELPAX [Suspect]
     Indication: MIGRAINE
     Dosage: 40MG, ONE TAB AT ONSET OF HEADACHE, MAY REPEAT IN 2 HRS FOR HORRIBLE MIGRAINE
     Route: 048
     Dates: start: 20090226

REACTIONS (1)
  - HEADACHE [None]
